FAERS Safety Report 5848108-8 (Version None)
Quarter: 2008Q3

REPORT INFORMATION
  Report Type: 
  Country: None (occurrence: None)
  Receive Date: 20080818
  Receipt Date: 20080814
  Transmission Date: 20090109
  Serious: Yes (Congenital Anomaly)
  Sender: FDA-Public Use
  Company Number: GB-ABBOTT-05P-167-0311779-00

PATIENT
  Sex: Male

DRUGS (1)
  1. EPILIM [Suspect]
     Indication: DRUG EXPOSURE DURING PREGNANCY

REACTIONS (17)
  - AMNESIA [None]
  - ASTIGMATISM [None]
  - BRACHYCEPHALY [None]
  - CLINODACTYLY [None]
  - DISTURBANCE IN ATTENTION [None]
  - DYSMORPHISM [None]
  - ENURESIS [None]
  - FEELING JITTERY [None]
  - FOETAL ANTICONVULSANT SYNDROME [None]
  - HEARING IMPAIRED [None]
  - HYPERTELORISM OF ORBIT [None]
  - LEARNING DISABILITY [None]
  - LEARNING DISORDER [None]
  - MYOPIA [None]
  - PECTUS CARINATUM [None]
  - SPEECH DISORDER [None]
  - UNEVALUABLE EVENT [None]
